FAERS Safety Report 7277964-4 (Version None)
Quarter: 2011Q1

REPORT INFORMATION
  Report Type: 
  Country: None (occurrence: None)
  Receive Date: 20110207
  Receipt Date: 20110127
  Transmission Date: 20110831
  Serious: Yes (Hospitalization)
  Sender: FDA-Public Use
  Company Number: MY-ROCHE-756285

PATIENT
  Sex: Male

DRUGS (8)
  1. TEMSIROLIMUS [Suspect]
     Indication: METASTATIC RENAL CELL CARCINOMA
     Route: 042
     Dates: start: 20100520
  2. ZOLEDRONIC ACID [Suspect]
     Route: 042
  3. CALCIUM [Concomitant]
     Dates: start: 20100929
  4. ENALAPRIL MALEATE [Concomitant]
  5. VOLTAREN [Suspect]
     Indication: ANALGESIC THERAPY
     Route: 048
     Dates: start: 20110111, end: 20110125
  6. BEVACIZUMAB [Suspect]
     Indication: METASTATIC RENAL CELL CARCINOMA
     Route: 042
     Dates: start: 20100520, end: 20101215
  7. TRAMADOL HCL [Concomitant]
     Dates: start: 20110118
  8. SIMVASTATIN [Concomitant]
     Dates: start: 20100630

REACTIONS (1)
  - RENAL FAILURE ACUTE [None]
